FAERS Safety Report 7446647-X (Version None)
Quarter: 2011Q2

REPORT INFORMATION
  Report Type: 
  Country: None (occurrence: None)
  Receive Date: 20110429
  Receipt Date: 20110422
  Transmission Date: 20111010
  Serious: Yes (Other)
  Sender: FDA-Public Use
  Company Number: US-GENENTECH-317382

PATIENT
  Sex: Male
  Weight: 56.327 kg

DRUGS (1)
  1. NUTROPIN [Suspect]
     Indication: GROWTH HORMONE DEFICIENCY
     Dosage: 3.6 MG, QD
     Route: 058
     Dates: start: 20021004, end: 20100412

REACTIONS (1)
  - OSTEOCHONDROMA [None]
